FAERS Safety Report 8254694-3 (Version None)
Quarter: 2012Q2

REPORT INFORMATION
  Report Type: 
  Country: None (occurrence: None)
  Receive Date: 20120403
  Receipt Date: 20120326
  Transmission Date: 20120825
  Serious: Yes (Hospitalization)
  Sender: FDA-Public Use
  Company Number: US-BAYER-2012-030205

PATIENT
  Age: 36 Year
  Sex: Female
  Weight: 77.098 kg

DRUGS (3)
  1. LORTAB [Concomitant]
     Indication: PAIN
     Dosage: UNK
     Dates: start: 20090403
  2. YAZ [Suspect]
     Dosage: UNK
  3. DARVOCET [Concomitant]
     Indication: PAIN

REACTIONS (1)
  - PULMONARY EMBOLISM [None]
